FAERS Safety Report 8060853-5 (Version None)
Quarter: 2012Q1

REPORT INFORMATION
  Report Type: 
  Country: None (occurrence: None)
  Receive Date: 20120120
  Receipt Date: 20110216
  Transmission Date: 20120608
  Serious: No
  Sender: FDA-Public Use
  Company Number: US-ALLERGAN-1102291US

PATIENT
  Age: 82 Year
  Sex: Male

DRUGS (5)
  1. RESTASIS [Suspect]
     Indication: PRODUCT USED FOR UNKNOWN INDICATION
     Dosage: 1 GTT, BID
     Route: 047
     Dates: start: 20091201
  2. SOOTHE XP [Concomitant]
     Indication: CATARACT OPERATION
     Dosage: 1 GTT, Q4HR
     Route: 047
     Dates: start: 20091201
  3. ARTIFICIAL TEARS [Concomitant]
     Indication: CATARACT OPERATION
     Dosage: 1 GTT, Q4HR
     Route: 047
     Dates: start: 20091201
  4. OMNI [Concomitant]
     Indication: CATARACT OPERATION
     Dosage: 1 GTT, Q4HR
     Route: 047
     Dates: start: 20091201
  5. SYSTANE [Concomitant]
     Indication: CATARACT OPERATION
     Dosage: 1 GTT, Q4HR
     Route: 047
     Dates: start: 20091201

REACTIONS (1)
  - EYE DISCHARGE [None]
